FAERS Safety Report 4996082-9 (Version None)
Quarter: 2006Q2

REPORT INFORMATION
  Report Type: 
  Country: None (occurrence: None)
  Receive Date: 20060508
  Receipt Date: 20050928
  Transmission Date: 20061013
  Serious: Yes (Hospitalization, Other)
  Sender: FDA-Public Use
  Company Number: US-MERCK-0509USA04443

PATIENT
  Age: 60 Year
  Sex: Female
  Weight: 86 kg

DRUGS (5)
  1. VIOXX [Suspect]
     Indication: ARTHRITIS
     Route: 048
     Dates: start: 19990101, end: 20041001
  2. VIOXX [Suspect]
     Route: 048
     Dates: start: 19990101, end: 20041001
  3. VIOXX [Suspect]
     Route: 048
  4. PLAVIX [Concomitant]
     Route: 065
     Dates: start: 19990101
  5. PROZAC [Concomitant]
     Route: 065

REACTIONS (7)
  - CEREBROVASCULAR ACCIDENT [None]
  - GRAND MAL CONVULSION [None]
  - HEMIPARESIS [None]
  - LOSS OF CONSCIOUSNESS [None]
  - PARTIAL SEIZURES [None]
  - POLYTRAUMATISM [None]
  - PYREXIA [None]
